FAERS Safety Report 6122526-5 (Version None)
Quarter: 2009Q1

REPORT INFORMATION
  Report Type: 
  Country: None (occurrence: None)
  Receive Date: 20090318
  Receipt Date: 20081231
  Transmission Date: 20090719
  Serious: No
  Sender: FDA-Public Use
  Company Number: US-ASTRAZENECA-2008UW26626

PATIENT
  Age: 40 Year
  Sex: Female

DRUGS (1)
  1. SYMBICORT [Suspect]
     Dosage: UNKNOWN
     Route: 055
     Dates: start: 20081028, end: 20081201

REACTIONS (6)
  - CANDIDIASIS [None]
  - FEELING JITTERY [None]
  - MUSCLE TWITCHING [None]
  - NASOPHARYNGITIS [None]
  - RASH [None]
  - TREMOR [None]
